FAERS Safety Report 14873150 (Version 1)
Quarter: 2018Q2

REPORT INFORMATION
  Report Type: Spontaneous
  Country: US (occurrence: US)
  Receive Date: 20180424
  Receipt Date: 20180424
  Transmission Date: 20180711
  Serious: Yes (Hospitalization)
  Sender: FDA-Public Use
  Company Number: None

PATIENT
  Age: 62 Year
  Sex: Male

DRUGS (3)
  1. ESBRIET [Suspect]
     Active Substance: PIRFENIDONE
     Indication: PULMONARY FIBROSIS
     Dosage: ?          OTHER DOSE:1 CAP;?
     Route: 048
     Dates: start: 201803, end: 201804
  2. ESBRIET [Suspect]
     Active Substance: PIRFENIDONE
     Dosage: ?          OTHER DOSE:2 CAP; THEREAFTER?
     Route: 048
  3. ESBRIET [Suspect]
     Active Substance: PIRFENIDONE
     Dosage: ?          OTHER DOSE:3 CAP ;?
     Route: 048

REACTIONS (1)
  - Lung transplant [None]

NARRATIVE: CASE EVENT DATE: 201804
